FAERS Safety Report 4861189-3 (Version None)
Quarter: 2005Q4

REPORT INFORMATION
  Report Type: 
  Country: None (occurrence: None)
  Receive Date: 20051216
  Receipt Date: 20051202
  Transmission Date: 20060501
  Serious: Yes (Death, Hospitalization)
  Sender: FDA-Public Use
  Company Number: 200510765BFR

PATIENT
  Age: 51 Year
  Sex: Male
  Weight: 65 kg

DRUGS (4)
  1. CIPROFLOXACIN [Suspect]
     Indication: LUNG DISORDER
     Dosage: 400 MG, TID, INTRAVENOUS
     Route: 042
     Dates: start: 20050708, end: 20050712
  2. GENTAMICIN [Suspect]
     Indication: ENDOCARDITIS
     Dosage: 100 MG, BID, INTRAVENOUS
     Route: 042
     Dates: start: 20050621, end: 20050712
  3. AZACTAM [Suspect]
     Indication: LUNG DISORDER
     Dosage: 1 G, QID, INTRAVENOUS
     Route: 042
     Dates: start: 20050708, end: 20050712
  4. VANCOMYCIN [Suspect]
     Indication: ENDOCARDITIS
     Dosage: 1 G, BID, INTRAVENOUS
     Route: 042
     Dates: start: 20050621, end: 20050716

REACTIONS (9)
  - ACIDOSIS [None]
  - BLISTER [None]
  - DRUG ERUPTION [None]
  - HEPATIC FAILURE [None]
  - LEUKOCYTOSIS [None]
  - LUNG DISORDER [None]
  - MEDIASTINITIS [None]
  - MULTI-ORGAN FAILURE [None]
  - RENAL FAILURE [None]
